FAERS Safety Report 7605950-0 (Version None)
Quarter: 2011Q3

REPORT INFORMATION
  Report Type: 
  Country: None (occurrence: None)
  Receive Date: 20110713
  Receipt Date: 20110629
  Transmission Date: 20111222
  Serious: Yes (Other)
  Sender: FDA-Public Use
  Company Number: PHHY2011BR58898

PATIENT
  Sex: Female

DRUGS (1)
  1. EXFORGE [Suspect]

REACTIONS (5)
  - EYE SWELLING [None]
  - VOMITING [None]
  - BLOOD PRESSURE FLUCTUATION [None]
  - GLAUCOMA [None]
  - GASTRITIS [None]
